FAERS Safety Report 8506252-0 (Version None)
Quarter: 2012Q3

REPORT INFORMATION
  Report Type: 
  Country: None (occurrence: None)
  Receive Date: 20120712
  Receipt Date: 20120705
  Transmission Date: 20120928
  Serious: Yes (Other)
  Sender: FDA-Public Use
  Company Number: AU-ROCHE-1085145

PATIENT
  Sex: Male

DRUGS (7)
  1. METHOTREXATE [Concomitant]
     Indication: RHEUMATOID ARTHRITIS
     Route: 048
  2. ACTEMRA [Suspect]
     Indication: RHEUMATOID ARTHRITIS
     Route: 042
     Dates: start: 20110304
  3. FOLIC ACID [Concomitant]
  4. ACTONEL [Concomitant]
     Indication: OSTEOPOROSIS
     Route: 048
  5. PREDNISOLONE [Concomitant]
     Indication: RHEUMATOID ARTHRITIS
     Route: 048
  6. DICLOFENAC SODIUM [Concomitant]
  7. AMOXICILLIN [Concomitant]

REACTIONS (2)
  - EAR INFECTION [None]
  - HAEMOCHROMATOSIS [None]
